FAERS Safety Report 21004916 (Version 2)
Quarter: 2022Q3

REPORT INFORMATION
  Report Type: Spontaneous
  Country: CN (occurrence: CN)
  Receive Date: 20220624
  Receipt Date: 20220928
  Transmission Date: 20221027
  Serious: Yes (Other)
  Sender: FDA-Public Use
  Company Number: CN-NOVARTISPH-NVSC2022CN143161

PATIENT
  Age: 36 Year
  Sex: Female

DRUGS (11)
  1. CYCLOSPORINE [Suspect]
     Active Substance: CYCLOSPORINE
     Indication: Thrombocytopenic purpura
     Dosage: UNK
     Route: 065
  2. EUTHYROX [Suspect]
     Active Substance: LEVOTHYROXINE SODIUM
     Indication: Hypothyroidism
     Dosage: UNK
     Route: 048
  3. DEXAMETHASONE [Suspect]
     Active Substance: DEXAMETHASONE
     Indication: Thrombocytopenia
     Dosage: 10 MG
     Route: 030
  4. DEXAMETHASONE [Suspect]
     Active Substance: DEXAMETHASONE
     Dosage: 20 MG
     Route: 042
  5. DEXAMETHASONE [Suspect]
     Active Substance: DEXAMETHASONE
     Dosage: 40 MG HIGH DOSE PULSE
     Route: 065
  6. ADENOSINE TRIPHOSPHATE DISODIUM [Suspect]
     Active Substance: ADENOSINE TRIPHOSPHATE DISODIUM
     Indication: Nutritional supplementation
     Dosage: UNK
     Route: 065
  7. IRON [Suspect]
     Active Substance: IRON
     Indication: Anaemia
     Dosage: UNK
     Route: 065
  8. PREDNISONE [Suspect]
     Active Substance: PREDNISONE
     Indication: Thrombocytopenia
     Dosage: 50 MG, QD
     Route: 065
  9. THROMBOPOIETIN [Suspect]
     Active Substance: THROMBOPOIETIN
     Indication: Thrombocytopenia
     Dosage: 25000 U/D
     Route: 065
  10. IMMUNE GLOBULIN NOS [Suspect]
     Active Substance: IMMUNE GLOBULIN NOS
     Indication: Thrombocytopenia
     Dosage: 400 MG/KG, QD
     Route: 041
     Dates: start: 20200115
  11. IMMUNE GLOBULIN NOS [Suspect]
     Active Substance: IMMUNE GLOBULIN NOS
     Dosage: SECOND COURSE
     Route: 065

REACTIONS (3)
  - Premature delivery [Unknown]
  - Product use in unapproved indication [Unknown]
  - Maternal exposure during pregnancy [Unknown]
